FAERS Safety Report 8875415 (Version 1)
Quarter: 2012Q4

REPORT INFORMATION
  Report Type: 
  Country: US (occurrence: US)
  Receive Date: 20121023
  Receipt Date: 20121023
  Transmission Date: 20130627
  Serious: No
  Sender: FDA-Public Use
  Company Number: US-009507513-1210USA003599

PATIENT
  Age: 83 Year
  Sex: Female

DRUGS (3)
  1. AZASITE [Suspect]
     Indication: BLEPHARITIS
     Dosage: 2 Gtt, qd
     Route: 047
     Dates: start: 20120907, end: 20120917
  2. AZASITE [Suspect]
     Dosage: 2 Gtt, qd
     Route: 047
     Dates: start: 20120924
  3. TIMOLOL [Concomitant]

REACTIONS (3)
  - Drug ineffective [Unknown]
  - Product quality issue [Unknown]
  - Off label use [Unknown]
